FAERS Safety Report 14297042 (Version 2)
Quarter: 2018Q3

REPORT INFORMATION
  Report Type: Spontaneous
  Country: TR (occurrence: TR)
  Receive Date: 20171218
  Receipt Date: 20180808
  Transmission Date: 20181010
  Serious: Yes (Other)
  Sender: FDA-Public Use
  Company Number: TR-PFIZER INC-2017535266

PATIENT
  Age: 21 Day
  Sex: Female

DRUGS (9)
  1. SIROLIMUS. [Suspect]
     Active Substance: SIROLIMUS
     Dosage: 2 MG/M2, DAILY
  2. OCTREOTIDE. [Concomitant]
     Active Substance: OCTREOTIDE
     Indication: PANCREATIC DISORDER
     Dosage: 6 UG/KG, DAILY
     Route: 058
  3. OCTREOTIDE. [Concomitant]
     Active Substance: OCTREOTIDE
     Indication: HYPERINSULINISM
     Dosage: 40 UG/KG, DAILY
     Route: 058
  4. SIROLIMUS. [Suspect]
     Active Substance: SIROLIMUS
     Dosage: 3.1 MG/M2, DAILY
     Route: 048
  5. LEVOTHYROXINE. [Concomitant]
     Active Substance: LEVOTHYROXINE
     Indication: CONGENITAL HYPOTHYROIDISM
     Dosage: 12 UG/KG, DAILY
  6. SIROLIMUS. [Suspect]
     Active Substance: SIROLIMUS
     Indication: HYPERINSULINISM
     Dosage: UNK
  7. SIROLIMUS. [Suspect]
     Active Substance: SIROLIMUS
     Indication: PANCREATIC DISORDER
     Dosage: 0.5 MG/M2, DAILY (ON DAY 21)
     Route: 048
  8. SIROLIMUS. [Suspect]
     Active Substance: SIROLIMUS
     Indication: GENE MUTATION
     Dosage: 3 MG/M2, DAILY
     Route: 048
  9. OCTREOTIDE. [Concomitant]
     Active Substance: OCTREOTIDE
     Indication: GENE MUTATION
     Dosage: 45 UG/KG, DAILY (INCREASED TO 45 MCG/KG/D)

REACTIONS (4)
  - Drug effective for unapproved indication [Unknown]
  - Product use in unapproved indication [Unknown]
  - Drug administered to patient of inappropriate age [Unknown]
  - Drug-induced liver injury [Recovered/Resolved]
